FAERS Safety Report 5472621-9 (Version None)
Quarter: 2007Q3

REPORT INFORMATION
  Report Type: 
  Country: None (occurrence: None)
  Receive Date: 20070926
  Receipt Date: 20070920
  Transmission Date: 20080115
  Serious: Yes (Life-Threatening, Hospitalization)
  Sender: FDA-Public Use
  Company Number: 2007SP016557

PATIENT
  Age: 76 Year
  Sex: Female
  Weight: 47.5 kg

DRUGS (10)
  1. TEMODAL [Suspect]
     Indication: GLIOBLASTOMA MULTIFORME
     Dosage: 100 MG; QD; NGT
     Dates: start: 20070627, end: 20070804
  2. PHENYTOIN [Suspect]
     Indication: CONVULSION
     Dosage: 2 GM; QD; NGT
     Dates: start: 20070621, end: 20070804
  3. BACTRIM [Suspect]
     Indication: BONE MARROW FAILURE
     Dosage: 1 GM; NGT
     Dates: start: 20070726, end: 20070815
  4. MINOCYCLINE HCL [Suspect]
     Indication: BONE MARROW FAILURE
     Dosage: 200 MG; NGT
     Dates: start: 20070730, end: 20070803
  5. HALFDIGOXIN (CON.) [Concomitant]
  6. MAINTATE (CON.) [Concomitant]
  7. ZOFRAN (CON.) [Concomitant]
  8. ASPIRIN (CON.) [Concomitant]
  9. GASTER (CON.) [Concomitant]
  10. POLARAMIN (CON.) [Concomitant]

REACTIONS (2)
  - BONE MARROW FAILURE [None]
  - STEVENS-JOHNSON SYNDROME [None]
